FAERS Safety Report 19153020 (Version 1)
Quarter: 2021Q2

REPORT INFORMATION
  Report Type: Spontaneous
  Country: SA (occurrence: SA)
  Receive Date: 20210419
  Receipt Date: 20210419
  Transmission Date: 20210717
  Serious: Yes (Hospitalization, Other)
  Sender: FDA-Public Use
  Company Number: SA-ACCORD-222532

PATIENT
  Age: 40 Year
  Sex: Female

DRUGS (3)
  1. MYCOPHENOLIC ACID. [Concomitant]
     Active Substance: MYCOPHENOLIC ACID
     Indication: IMMUNOSUPPRESSANT DRUG THERAPY
  2. TACROLIMUS. [Suspect]
     Active Substance: TACROLIMUS
     Indication: IMMUNOSUPPRESSANT DRUG THERAPY
  3. PREDNISOLONE. [Concomitant]
     Active Substance: PREDNISOLONE
     Indication: IMMUNOSUPPRESSANT DRUG THERAPY

REACTIONS (4)
  - Pancreatitis acute [Unknown]
  - Pancreatic pseudocyst haemorrhage [Recovering/Resolving]
  - Haemoglobin decreased [Unknown]
  - Splenic haemorrhage [Recovering/Resolving]
